FAERS Safety Report 14679665 (Version 1)
Quarter: 2018Q1

REPORT INFORMATION
  Report Type: Spontaneous
  Country: US (occurrence: US)
  Receive Date: 20180326
  Receipt Date: 20180326
  Transmission Date: 20180509
  Serious: Yes (Death, Hospitalization, Other)
  Sender: FDA-Public Use
  Company Number: US-AUROBINDO-AUR-APL-2018-016725

PATIENT

DRUGS (1)
  1. LEVOFLOXACIN. [Suspect]
     Active Substance: LEVOFLOXACIN
     Indication: PRODUCT USED FOR UNKNOWN INDICATION
     Dosage: 750 MILLIGRAM

REACTIONS (10)
  - Confusional state [Unknown]
  - Erythema [Unknown]
  - Vomiting [Unknown]
  - Pruritus [Unknown]
  - Multiple organ dysfunction syndrome [Fatal]
  - Jaundice [Unknown]
  - Rash [Unknown]
  - Hepatotoxicity [Fatal]
  - Cardio-respiratory arrest [Fatal]
  - Abdominal pain [Unknown]
